FAERS Safety Report 10267895 (Version 1)
Quarter: 2014Q2

REPORT INFORMATION
  Report Type: Spontaneous
  Country: RU (occurrence: RU)
  Receive Date: 20140630
  Receipt Date: 20140630
  Transmission Date: 20141212
  Serious: Yes (Death, Life-Threatening, Hospitalization, Other)
  Sender: FDA-Public Use
  Company Number: RU-MERCK-1406RUS011730

PATIENT
  Age: 56 Year
  Sex: Male
  Weight: 80 kg

DRUGS (4)
  1. VICTRELIS [Suspect]
     Indication: HEPATITIS C
     Dosage: 4 CAPSULES 3 TIMES A DAY
     Route: 048
     Dates: start: 20140418
  2. PEGINTRON [Suspect]
     Indication: HEPATITIS C
     Dosage: 120 MICROGRAM, QW
     Dates: start: 20140314
  3. RIBAVIRIN [Suspect]
     Indication: HEPATITIS C
     Dosage: TOTAL DAILY DOSE OF 800 MG
     Route: 048
     Dates: start: 20140314
  4. PHOSPHOGLIV [Concomitant]
     Route: 042

REACTIONS (4)
  - Subarachnoid haemorrhage [Fatal]
  - Haemorrhage [Fatal]
  - Pancytopenia [Fatal]
  - General physical health deterioration [Fatal]
